FAERS Safety Report 6584902-6 (Version None)
Quarter: 2010Q1

REPORT INFORMATION
  Report Type: 
  Country: None (occurrence: None)
  Receive Date: 20100217
  Receipt Date: 20100208
  Transmission Date: 20100710
  Serious: Yes (Hospitalization)
  Sender: FDA-Public Use
  Company Number: BR-ASTRAZENECA-2010SE05912

PATIENT
  Age: 49 Year
  Sex: Female

DRUGS (16)
  1. SYMBICORT [Suspect]
     Indication: CHRONIC OBSTRUCTIVE PULMONARY DISEASE
     Dosage: 160/4.5 MCG - BID
     Route: 055
     Dates: start: 20070101
  2. SYMBICORT [Suspect]
     Indication: EMPHYSEMA
     Dosage: 160/4.5 MCG - BID
     Route: 055
     Dates: start: 20070101
  3. SYMBICORT [Suspect]
     Indication: BRONCHITIS
     Dosage: 160/4.5 MCG - BID
     Route: 055
     Dates: start: 20070101
  4. SPIRIVA [Concomitant]
     Indication: CHRONIC OBSTRUCTIVE PULMONARY DISEASE
     Route: 055
     Dates: start: 20070101, end: 20091001
  5. SPIRIVA [Concomitant]
     Indication: EMPHYSEMA
     Route: 055
     Dates: start: 20070101, end: 20091001
  6. SPIRIVA [Concomitant]
     Indication: BRONCHITIS
     Route: 055
     Dates: start: 20070101, end: 20091001
  7. ENALAPRIL MALEATE [Concomitant]
     Indication: HYPERTENSION
     Route: 048
  8. NIFEDIPINE [Concomitant]
     Indication: HYPERTENSION
     Dosage: THREE TIMES A DAY.
     Route: 048
  9. FUROSEMIDE [Concomitant]
     Indication: HYPERTENSION
     Dosage: THREE TIMES A DAY.
     Route: 048
  10. ASA PEDIATRIC [Concomitant]
     Indication: CARDIAC DISORDER
     Route: 048
  11. CLONAZEPAM [Concomitant]
     Indication: INSOMNIA
     Dosage: 10 DROPS - DAILY
     Route: 048
  12. FENOBARBITAL [Concomitant]
     Indication: EPILEPSY
     Route: 048
  13. LOSARTAN POTASSIUM [Concomitant]
     Indication: HYPERTENSION
     Dosage: THREE TIMES A DAY.
     Route: 048
  14. LACTULON [Concomitant]
     Indication: CONSTIPATION
     Dosage: DAILY.
     Route: 048
  15. ESPIRONOLACTONE [Concomitant]
     Indication: CARDIAC DISORDER
     Dosage: DAILY.
     Route: 048
  16. LISADOR [Concomitant]
     Indication: HEADACHE
     Dosage: AS REQUIRED.
     Route: 048

REACTIONS (4)
  - DYSPNOEA [None]
  - FATIGUE [None]
  - GAIT DISTURBANCE [None]
  - MITRAL VALVE DISEASE [None]
